FAERS Safety Report 9507734 (Version 1)
Quarter: 2013Q3

REPORT INFORMATION
  Report Type: Spontaneous
  Country: TR (occurrence: None)
  Receive Date: 20130905
  Receipt Date: 20130905
  Transmission Date: 20140515
  Serious: Yes (Hospitalization)
  Sender: FDA-Public Use
  Company Number: MYCO20130004

PATIENT
  Age: 28 Year
  Sex: Male

DRUGS (7)
  1. MYCOPHENOLATE MOFETIL [Suspect]
     Route: 048
     Dates: start: 2008
  2. MYCOPHENOLATE MOFETIL [Suspect]
     Route: 048
     Dates: start: 2008
  3. TACROLIMUS [Suspect]
     Route: 048
     Dates: start: 2008
  4. TACROLIMUS [Suspect]
     Route: 048
     Dates: start: 2008
  5. COLCHICINE [Concomitant]
  6. DELTACORTYL [Concomitant]
  7. L-THYROXINE [Concomitant]

REACTIONS (9)
  - Posterior reversible encephalopathy syndrome [None]
  - Diarrhoea [None]
  - Abdominal pain [None]
  - Vomiting [None]
  - Gastritis [None]
  - Gastroenteritis [None]
  - Encephalitis [None]
  - Grand mal convulsion [None]
  - Parasitic gastroenteritis [None]
